FAERS Safety Report 11640399 (Version 3)
Quarter: 2016Q3

REPORT INFORMATION
  Report Type: Report from Study
  Country: JP (occurrence: JP)
  Receive Date: 20151019
  Receipt Date: 20160811
  Transmission Date: 20161109
  Serious: Yes (Other)
  Sender: FDA-Public Use
  Company Number: JP-JNJFOC-20140609580

PATIENT
  Age: 31 Year
  Sex: Male

DRUGS (26)
  1. PREDONINE [Concomitant]
     Active Substance: PREDNISOLONE\PREDNISOLONE ACETATE\PREDNISOLONE SODIUM SUCCINATE
     Indication: SUDDEN HEARING LOSS
     Route: 048
     Dates: start: 20141122, end: 20141124
  2. PENTAMIDINE [Concomitant]
     Active Substance: PENTAMIDINE
     Indication: ANTIFUNGAL PROPHYLAXIS
     Route: 055
     Dates: start: 20120124, end: 20121212
  3. BESELNA [Concomitant]
     Indication: ANOGENITAL WARTS
     Route: 061
     Dates: start: 20120711, end: 20121017
  4. LAMISIL [Concomitant]
     Active Substance: TERBINAFINE HYDROCHLORIDE
     Indication: TINEA PEDIS
     Route: 061
     Dates: start: 20131106, end: 20131217
  5. LANOCONAZOLE [Concomitant]
     Active Substance: LANOCONAZOLE
     Indication: TINEA PEDIS
     Route: 061
     Dates: start: 20131218, end: 20150527
  6. PREDONINE [Concomitant]
     Active Substance: PREDNISOLONE\PREDNISOLONE ACETATE\PREDNISOLONE SODIUM SUCCINATE
     Indication: SUDDEN HEARING LOSS
     Route: 048
     Dates: start: 20141119, end: 20141121
  7. ADETPHOS [Concomitant]
     Active Substance: ADENOSINE TRIPHOSPHATE
     Indication: SUDDEN HEARING LOSS
     Route: 048
     Dates: start: 20141115, end: 20141215
  8. PREDONINE [Concomitant]
     Active Substance: PREDNISOLONE\PREDNISOLONE ACETATE\PREDNISOLONE SODIUM SUCCINATE
     Indication: SUDDEN HEARING LOSS
     Route: 048
     Dates: start: 20141202, end: 20141203
  9. NORVIR [Suspect]
     Active Substance: RITONAVIR
     Indication: HIV INFECTION
     Route: 048
     Dates: start: 20120418
  10. LOXOPROFEN [Concomitant]
     Active Substance: LOXOPROFEN
     Indication: GOUT
     Route: 048
     Dates: start: 20121003, end: 20121212
  11. ANTEBATE [Concomitant]
     Active Substance: BETAMETHASONE DIPROPIONATE
     Indication: TINEA PEDIS
     Route: 061
     Dates: start: 20131211, end: 20131217
  12. SAWACILLIN [Concomitant]
     Active Substance: AMOXICILLIN
     Indication: SYPHILIS
     Route: 048
     Dates: start: 20150323, end: 20150331
  13. PREDONINE [Concomitant]
     Active Substance: PREDNISOLONE\PREDNISOLONE ACETATE\PREDNISOLONE SODIUM SUCCINATE
     Indication: SUDDEN HEARING LOSS
     Route: 048
     Dates: start: 20150218, end: 20150220
  14. TRUVADA [Suspect]
     Active Substance: EMTRICITABINE\TENOFOVIR DISOPROXIL FUMARATE
     Indication: HIV INFECTION
     Route: 048
     Dates: start: 20120418
  15. SULFAMETHOXAZOLE AND TRIMETHOPRIM [Concomitant]
     Active Substance: SULFAMETHOXAZOLE\TRIMETHOPRIM
     Indication: ANTIFUNGAL PROPHYLAXIS
     Route: 048
     Dates: start: 20120111, end: 20120123
  16. ADETPHOS [Concomitant]
     Active Substance: ADENOSINE TRIPHOSPHATE
     Indication: SUDDEN HEARING LOSS
     Route: 048
     Dates: start: 20150218, end: 20150220
  17. METHYCOBAL [Concomitant]
     Active Substance: METHYLCOBALAMIN
     Indication: SUDDEN HEARING LOSS
     Route: 048
     Dates: start: 20150218, end: 20150220
  18. PREDONINE [Concomitant]
     Active Substance: PREDNISOLONE\PREDNISOLONE ACETATE\PREDNISOLONE SODIUM SUCCINATE
     Indication: SUDDEN HEARING LOSS
     Route: 048
     Dates: start: 20141125, end: 20141127
  19. PREDONINE [Concomitant]
     Active Substance: PREDNISOLONE\PREDNISOLONE ACETATE\PREDNISOLONE SODIUM SUCCINATE
     Indication: SUDDEN HEARING LOSS
     Route: 048
     Dates: start: 20141128, end: 20141130
  20. PREZISTA [Suspect]
     Active Substance: DARUNAVIR ETHANOLATE
     Indication: HIV INFECTION
     Route: 048
     Dates: start: 20120418
  21. PREZISTA [Suspect]
     Active Substance: DARUNAVIR ETHANOLATE
     Indication: HIV INFECTION
     Route: 048
     Dates: start: 20140326
  22. ALOSITOL [Concomitant]
     Active Substance: ALLOPURINOL
     Indication: GOUT
     Route: 048
     Dates: start: 20121003
  23. METHYCOBAL [Concomitant]
     Active Substance: METHYLCOBALAMIN
     Indication: SUDDEN HEARING LOSS
     Route: 048
     Dates: start: 20141115, end: 20141215
  24. BENECID [Concomitant]
     Active Substance: PROBENECID
     Indication: SYPHILIS
     Route: 048
     Dates: start: 20150323, end: 20150331
  25. PREDONINE [Concomitant]
     Active Substance: PREDNISOLONE\PREDNISOLONE ACETATE\PREDNISOLONE SODIUM SUCCINATE
     Indication: SUDDEN HEARING LOSS
     Route: 048
     Dates: start: 20141204, end: 20141205
  26. PREDONINE [Concomitant]
     Active Substance: PREDNISOLONE\PREDNISOLONE ACETATE\PREDNISOLONE SODIUM SUCCINATE
     Indication: SUDDEN HEARING LOSS
     Route: 048
     Dates: start: 20141206, end: 20141207

REACTIONS (8)
  - Sudden hearing loss [Recovered/Resolved]
  - Rash [Recovered/Resolved]
  - Lipid metabolism disorder [Recovered/Resolved]
  - Syphilis [Recovering/Resolving]
  - Tinea pedis [Recovering/Resolving]
  - Gout [Recovering/Resolving]
  - Biliary tract disorder [Recovered/Resolved]
  - Anogenital warts [Recovering/Resolving]

NARRATIVE: CASE EVENT DATE: 20120428
